FAERS Safety Report 8903896 (Version 2)
Quarter: 2013Q1

REPORT INFORMATION
  Report Type: Spontaneous
  Country: US (occurrence: US)
  Receive Date: 20121112
  Receipt Date: 20130116
  Transmission Date: 20140127
  Serious: Yes (Hospitalization)
  Sender: FDA-Public Use
  Company Number: US-GILEAD-2012-0064304

PATIENT
  Sex: Female

DRUGS (13)
  1. LETAIRIS [Suspect]
     Indication: PULMONARY HYPERTENSION
     Route: 048
     Dates: start: 20121010, end: 20121017
  2. COZAAR [Concomitant]
  3. COREG [Concomitant]
  4. BUMETANIDE [Concomitant]
  5. WELLBUTRIN [Concomitant]
  6. PROTONIX [Concomitant]
  7. TRAZODONE [Concomitant]
  8. AMBIEN [Concomitant]
  9. BUSPIRONE [Concomitant]
  10. REVATIO [Concomitant]
  11. HYDRALAZINE [Concomitant]
  12. ASPIRIN [Concomitant]
  13. ALDACTONE                          /00006201/ [Concomitant]

REACTIONS (4)
  - Renal failure [Unknown]
  - Hypotension [Unknown]
  - Malaise [Unknown]
  - Nasal congestion [Unknown]
